FAERS Safety Report 6268197-9 (Version None)
Quarter: 2009Q3

REPORT INFORMATION
  Report Type: 
  Country: None (occurrence: None)
  Receive Date: 20090715
  Receipt Date: 20090703
  Transmission Date: 20100115
  Serious: Yes (Other)
  Sender: FDA-Public Use
  Company Number: GB-RANBAXY-2009RR-25527

PATIENT
  Age: 57 Year
  Sex: Female

DRUGS (2)
  1. AMOXICILLIN [Suspect]
     Indication: TOOTH INFECTION
     Dosage: UNK
     Route: 065
     Dates: start: 20070901
  2. AMOXICILLIN [Concomitant]
     Indication: SKIN TEST
     Dosage: UNK MG/ML, UNK

REACTIONS (4)
  - DERMATITIS EXFOLIATIVE [None]
  - FACE OEDEMA [None]
  - TOXIC SKIN ERUPTION [None]
  - TYPE IV HYPERSENSITIVITY REACTION [None]
